FAERS Safety Report 5775627-5 (Version None)
Quarter: 2008Q2

REPORT INFORMATION
  Report Type: 
  Country: None (occurrence: None)
  Receive Date: 20080617
  Receipt Date: 20080605
  Transmission Date: 20081010
  Serious: Yes (Other)
  Sender: FDA-Public Use
  Company Number: ES-PFIZER INC-2008016054

PATIENT
  Sex: Female
  Weight: 56 kg

DRUGS (2)
  1. VARENICLINE TABLETS [Suspect]
     Indication: SMOKING CESSATION THERAPY
     Route: 048
     Dates: start: 20080202, end: 20080227
  2. BOLTIN [Concomitant]
     Route: 048

REACTIONS (7)
  - ABDOMINAL DISTENSION [None]
  - ADNEXA UTERI PAIN [None]
  - FLATULENCE [None]
  - HYPERHIDROSIS [None]
  - INSOMNIA [None]
  - POLYURIA [None]
  - VAGINAL HAEMORRHAGE [None]
